FAERS Safety Report 4982484-3 (Version None)
Quarter: 2006Q2

REPORT INFORMATION
  Report Type: 
  Country: None (occurrence: None)
  Receive Date: 20060419
  Receipt Date: 20060412
  Transmission Date: 20061013
  Serious: Yes (Other)
  Sender: FDA-Public Use
  Company Number: 2006050340

PATIENT
  Age: 69 Year
  Sex: Male
  Weight: 106.5953 kg

DRUGS (4)
  1. NORVASC [Suspect]
     Indication: HYPERTENSION
     Dosage: 10 MG (10 MG, QD), ORAL
     Route: 048
  2. ZYRTEC [Suspect]
     Indication: HYPERSENSITIVITY
     Dosage: 10 MG (10 MG, QD), ORAL
     Route: 048
  3. ALLEGRA [Concomitant]
  4. NEXIUM [Concomitant]

REACTIONS (4)
  - BACK DISORDER [None]
  - DRY MOUTH [None]
  - GASTROOESOPHAGEAL REFLUX DISEASE [None]
  - HYPERCHLORHYDRIA [None]
